FAERS Safety Report 23380888 (Version 1)
Quarter: 2024Q1

REPORT INFORMATION
  Report Type: Report from Study
  Country: DE (occurrence: DE)
  Receive Date: 20240109
  Receipt Date: 20240109
  Transmission Date: 20240410
  Serious: Yes (Hospitalization, Other)
  Sender: FDA-Public Use
  Company Number: DE-ABBVIE-5574328

PATIENT
  Age: 54 Year
  Sex: Male
  Weight: 129 kg

DRUGS (6)
  1. SKYRIZI [Suspect]
     Active Substance: RISANKIZUMAB-RZAA
     Indication: Psoriasis
     Route: 058
     Dates: start: 20210525
  2. LANTUS SOLOSTAR [Concomitant]
     Active Substance: INSULIN GLARGINE
     Indication: Product used for unknown indication
     Dosage: 100 UNITS/ML?FREQUENCY TEXT: 1X12 IU AT NIGHT
  3. METFORMIN [Concomitant]
     Active Substance: METFORMIN HYDROCHLORIDE
     Indication: Product used for unknown indication
     Dosage: FORM STRENGTH: 1000 MG
     Route: 048
     Dates: start: 20220523
  4. PANTOPRAZOLE SODIUM [Concomitant]
     Active Substance: PANTOPRAZOLE SODIUM
     Indication: Product used for unknown indication
     Dosage: FORM STRENGTH: 20 MG
     Route: 048
     Dates: start: 20220520
  5. RAMIPRIL [Concomitant]
     Active Substance: RAMIPRIL
     Indication: Product used for unknown indication
     Dosage: FORM STRENGTH: 10 MG
     Route: 048
     Dates: start: 20220520
  6. INSULIN HUMAN [Concomitant]
     Active Substance: INSULIN HUMAN
     Indication: Product used for unknown indication
     Dosage: INSULIN
     Dates: start: 20220523

REACTIONS (5)
  - Peripheral arterial occlusive disease [Unknown]
  - Vascular stenosis [Unknown]
  - Peripheral artery occlusion [Unknown]
  - Arterial injury [Unknown]
  - Pain in extremity [Unknown]

NARRATIVE: CASE EVENT DATE: 20220101
